FAERS Safety Report 8235622-3 (Version None)
Quarter: 2012Q1

REPORT INFORMATION
  Report Type: 
  Country: None (occurrence: None)
  Receive Date: 20120326
  Receipt Date: 20120319
  Transmission Date: 20120608
  Serious: Yes (Hospitalization, Other)
  Sender: FDA-Public Use
  Company Number: US-INCYTE CORPORATION-2012IN000384

PATIENT
  Sex: Male

DRUGS (13)
  1. CRESTOR [Concomitant]
     Dosage: UNK
  2. ARANESP [Concomitant]
     Dosage: UNK
  3. JAKAFI [Suspect]
     Indication: MYELOFIBROSIS
     Dosage: 10 MG, BID
     Route: 048
     Dates: start: 20120303
  4. ANAGRELIDE HCL [Suspect]
     Dosage: UNK
  5. AVODART [Concomitant]
     Dosage: UNK
  6. FISH OIL [Concomitant]
     Dosage: UNK
  7. SINEMET [Concomitant]
     Dosage: UNK
  8. ASPIRIN [Concomitant]
     Dosage: 81 MG, UNK
  9. LEVOTHYROXINE SODIUM [Concomitant]
     Dosage: UNK
  10. FOLIC ACID [Concomitant]
     Dosage: UNK
  11. MULTI-VITAMINS [Concomitant]
     Dosage: UNK
  12. ALLOPURINOL [Concomitant]
     Dosage: UNK
  13. ZOLOFT [Concomitant]

REACTIONS (2)
  - POST PROCEDURAL HAEMORRHAGE [None]
  - HAEMATOMA [None]
